FAERS Safety Report 25791453 (Version 1)
Quarter: 2025Q3

REPORT INFORMATION
  Report Type: Spontaneous
  Country: US (occurrence: US)
  Receive Date: 20250911
  Receipt Date: 20250911
  Transmission Date: 20251021
  Serious: Yes (Hospitalization, Other)
  Sender: NOVO NORDISK
  Company Number: US-NOVOPROD-1514898

PATIENT
  Age: 38 Year
  Sex: Female

DRUGS (2)
  1. OZEMPIC [Suspect]
     Active Substance: SEMAGLUTIDE
     Dates: start: 2025, end: 2025
  2. OZEMPIC [Suspect]
     Active Substance: SEMAGLUTIDE
     Indication: Type 2 diabetes mellitus
     Dates: start: 2022, end: 2025

REACTIONS (3)
  - COVID-19 [Recovered/Resolved]
  - Pneumonia [Unknown]
  - Amnesia [Unknown]

NARRATIVE: CASE EVENT DATE: 20221127
